FAERS Safety Report 10358504 (Version 1)
Quarter: 2014Q3

REPORT INFORMATION
  Report Type: Spontaneous
  Country: US (occurrence: US)
  Receive Date: 20140801
  Receipt Date: 20140801
  Transmission Date: 20150326
  Serious: Yes (Other)
  Sender: FDA-Public Use
  Company Number: US-ACTELION-A-US2014-102682

PATIENT
  Age: 43 Year
  Sex: Female

DRUGS (12)
  1. OPSUMIT [Suspect]
     Active Substance: MACITENTAN
     Indication: PULMONARY ARTERIAL HYPERTENSION
     Dosage: 10 MG, QD
     Route: 048
     Dates: start: 20140207
  2. ATROVENT [Concomitant]
     Active Substance: IPRATROPIUM BROMIDE
  3. FOSRENOL [Concomitant]
     Active Substance: LANTHANUM CARBONATE
  4. ALLOPURINOL. [Concomitant]
     Active Substance: ALLOPURINOL
  5. SILDENAFIL [Concomitant]
     Active Substance: SILDENAFIL
  6. ALBUTEROL. [Concomitant]
     Active Substance: ALBUTEROL
  7. RENVELA [Concomitant]
     Active Substance: SEVELAMER CARBONATE
  8. PROAIR HFA [Concomitant]
     Active Substance: ALBUTEROL SULFATE
  9. OMEPRAZOLE. [Concomitant]
     Active Substance: OMEPRAZOLE
  10. COUMADIN [Concomitant]
     Active Substance: WARFARIN SODIUM
  11. ADVAIR HFA [Concomitant]
     Active Substance: FLUTICASONE PROPIONATE\SALMETEROL XINAFOATE
  12. RANITIDINE [Concomitant]
     Active Substance: RANITIDINE\RANITIDINE HYDROCHLORIDE

REACTIONS (2)
  - Headache [Unknown]
  - Dialysis [Unknown]
